FAERS Safety Report 24153429 (Version 1)
Quarter: 2024Q3

REPORT INFORMATION
  Report Type: Spontaneous
  Country: FR (occurrence: FR)
  Receive Date: 20240730
  Receipt Date: 20240730
  Transmission Date: 20241017
  Serious: Yes (Hospitalization)
  Sender: SANDOZ
  Company Number: FR-AFSSAPS-LY2024001007

PATIENT
  Age: 81 Year
  Sex: Female
  Weight: 67.2 kg

DRUGS (7)
  1. AMOXICILLIN [Suspect]
     Active Substance: AMOXICILLIN
     Indication: Sepsis
     Dosage: 2.000G QD
     Route: 048
     Dates: start: 20240529, end: 20240603
  2. AMOXICILLIN [Suspect]
     Active Substance: AMOXICILLIN
     Dosage: UNK
     Route: 048
     Dates: start: 20240523, end: 20240526
  3. ELIQUIS [Suspect]
     Active Substance: APIXABAN
     Indication: Atrial fibrillation
     Dosage: 10 MG, QD
     Route: 048
     Dates: start: 20240529, end: 20240603
  4. ACEBUTOLOL [Concomitant]
     Active Substance: ACEBUTOLOL
     Indication: Product used for unknown indication
     Dosage: UNK
     Route: 065
  5. CLAVULANIC ACID [Concomitant]
     Active Substance: CLAVULANIC ACID
     Indication: Product used for unknown indication
     Dosage: UNK
     Route: 065
     Dates: start: 20240523, end: 20240526
  6. ATORVASTATIN [Concomitant]
     Active Substance: ATORVASTATIN
     Indication: Product used for unknown indication
     Dosage: UNK
     Route: 065
  7. PRAZOSIN HYDROCHLORIDE [Concomitant]
     Active Substance: PRAZOSIN HYDROCHLORIDE
     Indication: Product used for unknown indication
     Dosage: UNK
     Route: 065

REACTIONS (1)
  - Immune-mediated nephritis [Recovered/Resolved]

NARRATIVE: CASE EVENT DATE: 20240603
